FAERS Safety Report 9913411 (Version 1)
Quarter: 2014Q1

REPORT INFORMATION
  Report Type: Spontaneous
  Country: US (occurrence: None)
  Receive Date: 20140214
  Receipt Date: 20140214
  Transmission Date: 20141002
  Serious: Yes (Other)
  Sender: FDA-Public Use
  Company Number: 2014P1000738

PATIENT
  Age: 40 Year
  Sex: Male

DRUGS (1)
  1. INFUMORPH [Suspect]
     Indication: PAIN
     Route: 037

REACTIONS (4)
  - Incision site oedema [None]
  - Twiddler^s syndrome [None]
  - Device malfunction [None]
  - Pain [None]
